FAERS Safety Report 4896800-4 (Version None)
Quarter: 2006Q1

REPORT INFORMATION
  Report Type: 
  Country: None (occurrence: None)
  Receive Date: 20060126
  Receipt Date: 20060113
  Transmission Date: 20060701
  Serious: Yes (Life-Threatening, Hospitalization)
  Sender: FDA-Public Use
  Company Number: GRP05000265

PATIENT
  Age: 64 Year
  Sex: Female
  Weight: 80.5 kg

DRUGS (9)
  1. ACTONEL [Suspect]
     Indication: OSTEOPOROSIS
     Dosage: 35 MG, 1/WEEK, ORAL
     Route: 048
  2. VOLTAREN [Suspect]
     Indication: PAIN IN EXTREMITY
     Dosage: 75 MG, 2/DAY, ORAL
     Route: 048
     Dates: start: 20050812, end: 20050815
  3. PREDNISOLONE [Suspect]
     Dosage: 7.5 MG, 1 DAY
  4. CALCIUM W/COLECALCIFEROL (CALCIUM COLECALCIFEROL) [Concomitant]
  5. LISINORPIL (LISINOPRIL) TABLET [Concomitant]
  6. TOPAMAX [Concomitant]
  7. LEVOTHYROXINE SODIUM [Concomitant]
  8. METOPROLOL (METOPROLOL) [Concomitant]
  9. OMEP (OMEPRAZOLE) [Concomitant]

REACTIONS (13)
  - ABSCESS [None]
  - ANAEMIA [None]
  - C-REACTIVE PROTEIN INCREASED [None]
  - DRUG INTERACTION [None]
  - DUODENAL ULCER PERFORATION [None]
  - FALL [None]
  - HUMERUS FRACTURE [None]
  - IMPAIRED GASTRIC EMPTYING [None]
  - LEUKOCYTOSIS [None]
  - METASTASES TO LYMPH NODES [None]
  - PURULENT DISCHARGE [None]
  - SCAR [None]
  - WOUND SECRETION [None]
